FAERS Safety Report 7292072-4 (Version None)
Quarter: 2011Q1

REPORT INFORMATION
  Report Type: 
  Country: None (occurrence: None)
  Receive Date: 20110215
  Receipt Date: 20110131
  Transmission Date: 20110831
  Serious: No
  Sender: FDA-Public Use
  Company Number: US-BIOGENIDEC-2010BI022689

PATIENT
  Sex: Female

DRUGS (2)
  1. TYSABRI [Suspect]
     Indication: MULTIPLE SCLEROSIS
     Route: 042
     Dates: start: 20070604, end: 20100216
  2. TYSABRI [Suspect]
     Route: 042
     Dates: start: 20100714, end: 20101215

REACTIONS (6)
  - THINKING ABNORMAL [None]
  - COGNITIVE DISORDER [None]
  - HEMIPARESIS [None]
  - DEPRESSION [None]
  - MOTOR DYSFUNCTION [None]
  - DRUG INEFFECTIVE [None]
